FAERS Safety Report 12282770 (Version 3)
Quarter: 2016Q3

REPORT INFORMATION
  Report Type: Spontaneous
  Country: US (occurrence: US)
  Receive Date: 20160419
  Receipt Date: 20160804
  Transmission Date: 20161109
  Serious: No
  Sender: FDA-Public Use
  Company Number: US-TEVA-646486ACC

PATIENT
  Age: 25 Year
  Sex: Female
  Weight: 51.3 kg

DRUGS (2)
  1. PARAGARD T 380A [Suspect]
     Active Substance: COPPER
     Indication: CONTRACEPTION
     Dates: start: 20160222, end: 20160321
  2. MOTRIN [Concomitant]
     Active Substance: IBUPROFEN
     Indication: PROCEDURAL PAIN
     Dates: start: 20160222

REACTIONS (4)
  - Vaginal haemorrhage [Unknown]
  - Pain [Unknown]
  - Device expulsion [Unknown]
  - Device expulsion [Recovered/Resolved]

NARRATIVE: CASE EVENT DATE: 20160321
